FAERS Safety Report 9051260 (Version 1)
Quarter: 2013Q1

REPORT INFORMATION
  Report Type: Spontaneous
  Country: FR (occurrence: FR)
  Receive Date: 20130206
  Receipt Date: 20130206
  Transmission Date: 20140127
  Serious: Yes (Hospitalization, Other)
  Sender: FDA-Public Use
  Company Number: FR-JNJFOC-20130201120

PATIENT
  Age: 76 Year
  Sex: Female

DRUGS (6)
  1. XARELTO [Suspect]
     Indication: PRODUCT USED FOR UNKNOWN INDICATION
     Route: 048
     Dates: start: 20121002, end: 2012
  2. RAMIPRIL [Concomitant]
  3. FUROSEMIDE [Concomitant]
  4. TENORMINE [Concomitant]
  5. AMIODARONE [Concomitant]
  6. LEVOTHYROX [Concomitant]

REACTIONS (4)
  - Lung disorder [Recovering/Resolving]
  - Cardiac failure [Recovering/Resolving]
  - Asthenia [Recovering/Resolving]
  - Vertigo [Recovering/Resolving]
